FAERS Safety Report 7842080-7 (Version None)
Quarter: 2011Q4

REPORT INFORMATION
  Report Type: 
  Country: None (occurrence: None)
  Receive Date: 20111025
  Receipt Date: 20111019
  Transmission Date: 20120403
  Serious: Yes (Other)
  Sender: FDA-Public Use
  Company Number: PHHY2011LB92598

PATIENT
  Age: 88 Year
  Sex: Male

DRUGS (2)
  1. ONBREZ [Suspect]
     Indication: CHRONIC OBSTRUCTIVE PULMONARY DISEASE
     Dosage: UNK
     Dates: start: 20111001
  2. VASTAREL [Concomitant]
     Route: 048

REACTIONS (1)
  - ARRHYTHMIA [None]
